FAERS Safety Report 9091249 (Version 1)
Quarter: 2013Q1

REPORT INFORMATION
  Report Type: Report from Study
  Country: US (occurrence: US)
  Receive Date: 20130201
  Receipt Date: 20130201
  Transmission Date: 20140127
  Serious: No
  Sender: FDA-Public Use
  Company Number: US-ABBOTT-12P-163-1020185-00

PATIENT
  Age: 43 Year
  Sex: Female

DRUGS (9)
  1. HUMIRA [Suspect]
     Indication: CROHN^S DISEASE
     Dosage: LOADING DOSE
     Dates: start: 20121206
  2. NEXIUM [Concomitant]
     Indication: GASTROOESOPHAGEAL REFLUX DISEASE
     Dosage: 40 MG DAILY
  3. LIALDA [Concomitant]
     Indication: CROHN^S DISEASE
     Dosage: 1.2 GM, 2 TABS DAILY
  4. TOPROL XL [Concomitant]
     Indication: BLOOD PRESSURE
     Dosage: 50 MG DAILY
  5. HCTZ [Concomitant]
     Indication: BLOOD PRESSURE
     Dosage: 25 MG DAILY
  6. ENTOCORT [Concomitant]
     Indication: CROHN^S DISEASE
  7. LEXAPRO [Concomitant]
     Indication: STRESS
     Dosage: 20 MG DAILY
  8. CREON [Concomitant]
     Indication: PANCREATITIS CHRONIC
     Dosage: 24,000 U, 2 CAPS WITH MEALS AND 1 CAP WITH SNACKS
  9. HYDROCORT ENEMA [Concomitant]
     Indication: CROHN^S DISEASE
     Dosage: 60 MG NIGHTLY

REACTIONS (3)
  - Hypoaesthesia [Not Recovered/Not Resolved]
  - Erythema [Unknown]
  - Swelling [Unknown]
